FAERS Safety Report 11820980 (Version 1)
Quarter: 2015Q4

REPORT INFORMATION
  Report Type: Spontaneous
  Country: US (occurrence: US)
  Receive Date: 20151210
  Receipt Date: 20151210
  Transmission Date: 20160305
  Serious: No
  Sender: FDA-Public Use
  Company Number: US-JNJFOC-20150723575

PATIENT
  Age: 75 Year
  Sex: Male

DRUGS (5)
  1. IMBRUVICA [Suspect]
     Active Substance: IBRUTINIB
     Indication: CHRONIC LYMPHOCYTIC LEUKAEMIA
     Route: 048
     Dates: start: 20140919
  2. VERAPAMIL [Concomitant]
     Active Substance: VERAPAMIL HYDROCHLORIDE
  3. PIOGLITAZONE. [Concomitant]
     Active Substance: PIOGLITAZONE
  4. TORSEMIDE. [Concomitant]
     Active Substance: TORSEMIDE
  5. ALLOPURINOL. [Concomitant]
     Active Substance: ALLOPURINOL

REACTIONS (2)
  - Incorrect dose administered [Not Recovered/Not Resolved]
  - Skin haemorrhage [Unknown]

NARRATIVE: CASE EVENT DATE: 20140919
